FAERS Safety Report 7500344-0 (Version None)
Quarter: 2011Q2

REPORT INFORMATION
  Report Type: 
  Country: None (occurrence: None)
  Receive Date: 20110524
  Receipt Date: 20110426
  Transmission Date: 20111010
  Serious: Yes (Hospitalization, Other)
  Sender: FDA-Public Use
  Company Number: US-BAYER-2011-008238

PATIENT
  Age: 21 Year
  Sex: Female
  Weight: 65.306 kg

DRUGS (13)
  1. YASMIN [Suspect]
     Indication: ACNE
     Dosage: UNK
     Dates: start: 20040101, end: 20070101
  2. RANITIDINE [Concomitant]
     Dosage: 150 MG, UNK
     Route: 048
  3. ADVAIR DISKUS 100/50 [Concomitant]
     Route: 045
  4. IBUPROFEN [Concomitant]
     Dosage: 600 MG, UNK
     Route: 048
  5. NUVARING [Concomitant]
  6. PREDNISONE [Concomitant]
     Dosage: 10 MG, UNK
     Route: 048
  7. YAZ [Suspect]
     Indication: ORAL CONTRACEPTION
  8. OXYCODONE HCL AND ACETAMINOPHEN [Concomitant]
     Route: 048
  9. YASMIN [Suspect]
     Indication: ORAL CONTRACEPTION
  10. CALNATE [Concomitant]
     Route: 048
  11. YAZ [Suspect]
     Indication: ACNE
  12. ALBUTEROL SULFATE AUTOHALER [Concomitant]
     Route: 045
  13. NUVARING [Concomitant]
     Route: 067

REACTIONS (6)
  - PAIN [None]
  - CHOLECYSTECTOMY [None]
  - CHOLECYSTITIS [None]
  - PANCREATITIS ACUTE [None]
  - PANCREATITIS CHRONIC [None]
  - INJURY [None]
